FAERS Safety Report 10266675 (Version 5)
Quarter: 2016Q3

REPORT INFORMATION
  Report Type: Report from Study
  Country: AU (occurrence: AU)
  Receive Date: 20140629
  Receipt Date: 20160808
  Transmission Date: 20161109
  Serious: Yes (Hospitalization)
  Sender: FDA-Public Use
  Company Number: AU-AMGEN-AUSCT2014047520

PATIENT
  Age: 27 Year
  Sex: Male

DRUGS (4)
  1. NEUROFEN [Concomitant]
     Active Substance: IBUPROFEN
     Dosage: 2 DF, AS NECESSARY
     Route: 048
     Dates: start: 20131213
  2. PARACETAMOL [Concomitant]
     Active Substance: ACETAMINOPHEN
     Dosage: 2 DF, AS NECESSARY
     Route: 048
     Dates: start: 20140505
  3. DENOSUMAB [Suspect]
     Active Substance: DENOSUMAB
     Indication: BONE GIANT CELL TUMOUR
     Dosage: 120 MG, Q4WK
     Route: 058
     Dates: start: 20090403
  4. OSTELIN [Concomitant]
     Active Substance: ERGOCALCIFEROL
     Dosage: 1 DF, TID
     Route: 048
     Dates: start: 20120818

REACTIONS (2)
  - Osteomyelitis [Recovered/Resolved]
  - Myositis [Recovered/Resolved]

NARRATIVE: CASE EVENT DATE: 20140621
